FAERS Safety Report 17992532 (Version 1)
Quarter: 2020Q3

REPORT INFORMATION
  Report Type: Spontaneous
  Country: DE (occurrence: DE)
  Receive Date: 20200707
  Receipt Date: 20200707
  Transmission Date: 20201103
  Serious: Yes (Other)
  Sender: FDA-Public Use
  Company Number: NVSC2020DE189087

PATIENT
  Age: 60 Year
  Sex: Female

DRUGS (1)
  1. SANDIMMUN OPTORAL [Suspect]
     Active Substance: CYCLOSPORINE
     Indication: APLASTIC ANAEMIA
     Dosage: UNK, FOR YEARS
     Route: 065

REACTIONS (3)
  - Product use in unapproved indication [Unknown]
  - Acute myeloid leukaemia [Unknown]
  - Myelodysplastic syndrome [Unknown]
